FAERS Safety Report 5972505-3 (Version None)
Quarter: 2008Q4

REPORT INFORMATION
  Report Type: 
  Country: None (occurrence: None)
  Receive Date: 20081201
  Receipt Date: 20081120
  Transmission Date: 20090506
  Serious: Yes (Life-Threatening, Hospitalization)
  Sender: FDA-Public Use
  Company Number: B0519914A

PATIENT
  Age: 77 Year
  Sex: Male

DRUGS (12)
  1. AUGMENTIN '125' [Suspect]
     Indication: COUGH
     Dosage: 2TABS TWICE PER DAY
     Route: 065
     Dates: start: 20080128, end: 20080129
  2. AUGMENTIN '125' [Suspect]
     Indication: PNEUMONIA
     Dosage: 875MG THREE TIMES PER DAY
     Route: 065
     Dates: start: 20080101, end: 20080120
  3. GLURENORM [Concomitant]
     Route: 065
  4. METFORMAX [Concomitant]
     Dosage: 1TAB THREE TIMES PER DAY
     Route: 065
  5. APROVEL [Concomitant]
     Route: 065
  6. SPIRIVA [Concomitant]
     Route: 065
  7. DUOVENT [Concomitant]
     Route: 065
  8. MEDROL [Concomitant]
     Route: 065
  9. LASIX [Concomitant]
     Route: 065
  10. SECTRAL [Concomitant]
     Indication: HYPERTENSION
     Dosage: 400MG PER DAY
     Route: 065
  11. BURINEX [Concomitant]
     Indication: CARDIAC FAILURE
     Route: 065
  12. AUGMENTIN '125' [Concomitant]
     Indication: BRONCHOPNEUMONIA
     Dosage: 875MG THREE TIMES PER DAY
     Route: 065
     Dates: start: 20080101, end: 20080120

REACTIONS (9)
  - BLOOD CREATININE INCREASED [None]
  - DYSURIA [None]
  - ELECTROCARDIOGRAM T WAVE INVERSION [None]
  - LEFT VENTRICULAR DYSFUNCTION [None]
  - LEUKOCYTURIA [None]
  - NEPHROLITHIASIS [None]
  - PLEURAL EFFUSION [None]
  - RENAL FAILURE ACUTE [None]
  - TUBULOINTERSTITIAL NEPHRITIS [None]
